FAERS Safety Report 9416068 (Version 1)
Quarter: 2013Q3

REPORT INFORMATION
  Report Type: Spontaneous
  Country: IT (occurrence: IT)
  Receive Date: 20130724
  Receipt Date: 20130724
  Transmission Date: 20140515
  Serious: Yes (Hospitalization)
  Sender: FDA-Public Use
  Company Number: IT-MYLANLABS-2013S1015363

PATIENT
  Age: 21 Year
  Sex: Male

DRUGS (2)
  1. ACICLOVIR [Suspect]
     Indication: HERPES ZOSTER
     Route: 048
     Dates: start: 20130604, end: 20130604
  2. LYRICA [Suspect]
     Indication: HERPES ZOSTER
     Route: 048
     Dates: start: 20130604, end: 20130604

REACTIONS (2)
  - Asthenia [Unknown]
  - Somnolence [Unknown]
